FAERS Safety Report 9834041 (Version 2)
Quarter: 2014Q1

REPORT INFORMATION
  Report Type: Spontaneous
  Country: US (occurrence: US)
  Receive Date: 20140122
  Receipt Date: 20140211
  Transmission Date: 20141002
  Serious: Yes (Hospitalization)
  Sender: FDA-Public Use
  Company Number: US-SUN PHARMACEUTICAL INDUSTRIES LTD-2014SUN00024

PATIENT
  Age: 27 Year
  Sex: Male

DRUGS (5)
  1. LITHIUM CARBONATE TABLETS, USP 300MG [Suspect]
     Indication: SCHIZOAFFECTIVE DISORDER
     Dosage: 1350 MG, OD
     Route: 065
  2. RISPERIDONE [Concomitant]
  3. HYDROXYZINE [Concomitant]
  4. TRAZODONE [Concomitant]
  5. ASENAPINE [Concomitant]

REACTIONS (2)
  - Thyroiditis acute [Recovered/Resolved]
  - Hyperthyroidism [Recovered/Resolved]
